FAERS Safety Report 8244866-6 (Version None)
Quarter: 2012Q1

REPORT INFORMATION
  Report Type: 
  Country: None (occurrence: None)
  Receive Date: 20120329
  Receipt Date: 20110713
  Transmission Date: 20120608
  Serious: Yes (Other)
  Sender: FDA-Public Use
  Company Number: US-MYLANLABS-2011S1014551

PATIENT
  Age: 63 Year
  Sex: Male
  Weight: 70.31 kg

DRUGS (6)
  1. OXYCODONE HCL AND ACETAMINOPHEN [Concomitant]
     Indication: BREAKTHROUGH PAIN
     Dosage: 5/325MG
     Route: 048
  2. TAMSULOSIN HCL [Concomitant]
     Indication: PROSTATOMEGALY
     Dates: start: 20080101
  3. SYNTHROID [Concomitant]
     Indication: HYPOTHYROIDISM
     Route: 048
  4. LIPITOR [Concomitant]
     Indication: BLOOD CHOLESTEROL INCREASED
     Route: 048
  5. FENTANYL-100 [Suspect]
     Indication: BACK PAIN
     Dosage: Q48H
     Route: 062
     Dates: start: 20110101
  6. ENALAPRIL [Concomitant]
     Indication: BLOOD PRESSURE INCREASED
     Route: 048

REACTIONS (4)
  - DRUG EFFECT DECREASED [None]
  - BACK PAIN [None]
  - ANXIETY [None]
  - DRUG DEPENDENCE [None]
